FAERS Safety Report 9144614 (Version 2)
Quarter: 2013Q2

REPORT INFORMATION
  Report Type: Spontaneous
  Country: IT (occurrence: IT)
  Receive Date: 20130306
  Receipt Date: 20130422
  Transmission Date: 20140414
  Serious: Yes (Hospitalization)
  Sender: FDA-Public Use
  Company Number: IT-ROCHE-1197707

PATIENT
  Age: 59 Year
  Sex: Male

DRUGS (4)
  1. TORADOL [Suspect]
     Indication: BACK PAIN
     Dosage: 10 MG/ML
     Route: 030
     Dates: start: 20130202
  2. CIPROXIN [Interacting]
     Indication: PNEUMONITIS
     Route: 048
     Dates: start: 20130110, end: 20130131
  3. PANTOPRAZOLE [Concomitant]
  4. ACETYLSALICYLIC ACID [Concomitant]
     Route: 065

REACTIONS (2)
  - Drug interaction [Unknown]
  - Renal failure acute [Recovering/Resolving]
